FAERS Safety Report 7204553-X (Version None)
Quarter: 2010Q4

REPORT INFORMATION
  Report Type: 
  Country: None (occurrence: None)
  Receive Date: 20101230
  Receipt Date: 20101222
  Transmission Date: 20110411
  Serious: Yes (Hospitalization)
  Sender: FDA-Public Use
  Company Number: PHHO2010US19536

PATIENT
  Sex: Male
  Weight: 100.68 kg

DRUGS (11)
  1. AFINITOR [Suspect]
     Indication: METASTATIC MALIGNANT MELANOMA
     Dosage: 5 MG
     Route: 048
     Dates: start: 20101215, end: 20101221
  2. PACLITAXEL [Suspect]
     Indication: METASTATIC MALIGNANT MELANOMA
     Dosage: 392 MG,
     Route: 042
     Dates: start: 20101215, end: 20101215
  3. CARBOPLATIN [Suspect]
     Indication: METASTATIC MALIGNANT MELANOMA
     Dosage: 684 MG,
     Route: 042
     Dates: start: 20101215, end: 20101215
  4. COREG [Concomitant]
  5. FAMOTIDINE [Concomitant]
  6. GEMFIBROZIL [Concomitant]
  7. LISINOPRIL [Concomitant]
  8. NITROGLYCERIN [Concomitant]
  9. PLAVIX [Concomitant]
  10. PRILOSEC [Concomitant]
  11. SYMBICORT [Concomitant]

REACTIONS (4)
  - ABDOMINAL PAIN [None]
  - ASTHENIA [None]
  - CHILLS [None]
  - FEBRILE NEUTROPENIA [None]
